FAERS Safety Report 4687950-6 (Version None)
Quarter: 2005Q2

REPORT INFORMATION
  Report Type: 
  Country: None (occurrence: None)
  Receive Date: 20050610
  Receipt Date: 20050602
  Transmission Date: 20051028
  Serious: Yes (Other)
  Sender: FDA-Public Use
  Company Number: 406067

PATIENT
  Age: 77 Year
  Sex: Female

DRUGS (1)
  1. CARVEDILOL [Suspect]
     Indication: DRUG USE FOR UNKNOWN INDICATION
     Dosage: 5MG PER DAY
     Route: 065

REACTIONS (2)
  - JAUNDICE [None]
  - LIVER DISORDER [None]
